FAERS Safety Report 10740085 (Version 16)
Quarter: 2021Q3

REPORT INFORMATION
  Report Type: Other
  Country: CA (occurrence: CA)
  Receive Date: 20150127
  Receipt Date: 20210823
  Transmission Date: 20211014
  Serious: Yes (Other)
  Sender: FDA-Public Use
  Company Number: CA-ROCHE-1314168

PATIENT
  Age: 68 Year
  Sex: Female
  Weight: 136.1 kg

DRUGS (27)
  1. RITUXAN [Suspect]
     Active Substance: RITUXIMAB
     Dosage: 500 MG ONCE
     Route: 042
     Dates: start: 20160623
  2. SOLU?MEDROL [Concomitant]
     Active Substance: METHYLPREDNISOLONE SODIUM SUCCINATE
     Route: 042
     Dates: start: 20170710
  3. RITUXAN [Suspect]
     Active Substance: RITUXIMAB
     Route: 042
     Dates: start: 20150130
  4. CRANBERRY. [Concomitant]
     Active Substance: CRANBERRY
  5. METHYLPREDNISOLONE. [Concomitant]
     Active Substance: METHYLPREDNISOLONE
     Indication: PREMEDICATION
     Route: 042
     Dates: start: 20131125
  6. SALBUTAMOL [Concomitant]
     Active Substance: ALBUTEROL
     Indication: FLUID IMBALANCE
     Route: 065
  7. ACETAMINOPHEN. [Concomitant]
     Active Substance: ACETAMINOPHEN
     Route: 048
     Dates: start: 20170710
  8. FOLIC ACID. [Concomitant]
     Active Substance: FOLIC ACID
  9. CITALOPRAM [Concomitant]
     Active Substance: CITALOPRAM HYDROBROMIDE
  10. NORTRIPTYLINE [Concomitant]
     Active Substance: NORTRIPTYLINE
  11. PROPANOLOL [Concomitant]
     Active Substance: PROPRANOLOL HYDROCHLORIDE
     Indication: TACHYCARDIA
  12. OLUMIANT [Concomitant]
     Active Substance: BARICITINIB
     Indication: PRODUCT USED FOR UNKNOWN INDICATION
  13. RITUXAN [Suspect]
     Active Substance: RITUXIMAB
     Dosage: DAY 1 AND 15
     Route: 042
     Dates: end: 20210213
  14. BRICANYL [Suspect]
     Active Substance: TERBUTALINE SULFATE
     Indication: PRODUCT USED FOR UNKNOWN INDICATION
     Dosage: AS REQUIRED
     Route: 065
  15. METHOTREXATE. [Concomitant]
     Active Substance: METHOTREXATE
     Route: 048
  16. HYDROCHLOROTHIAZIDE. [Concomitant]
     Active Substance: HYDROCHLOROTHIAZIDE
  17. OXYBUTYNIN. [Concomitant]
     Active Substance: OXYBUTYNIN CHLORIDE
  18. DIPHENHYDRAMINE. [Concomitant]
     Active Substance: DIPHENHYDRAMINE
     Indication: PREMEDICATION
     Route: 048
     Dates: start: 20131125
  19. ACETAMINOPHEN. [Concomitant]
     Active Substance: ACETAMINOPHEN
     Indication: PREMEDICATION
     Route: 048
     Dates: start: 20131125
  20. RAMIPRIL. [Concomitant]
     Active Substance: RAMIPRIL
  21. TYLENOL WITH CODEINE [Concomitant]
     Active Substance: ACETAMINOPHEN\CODEINE PHOSPHATE
  22. RITUXAN [Suspect]
     Active Substance: RITUXIMAB
     Indication: RHEUMATOID ARTHRITIS
     Dosage: DAY 1 AND DAY 15, 24/JUN/2016 (PREVIOUS RITUXIMAB INFUSION)
     Route: 042
     Dates: start: 20131125
  23. RITUXAN [Suspect]
     Active Substance: RITUXIMAB
     Dosage: 500 MG ONCE
     Route: 042
     Dates: start: 20170710
  24. SYMBICORT [Concomitant]
     Active Substance: BUDESONIDE\FORMOTEROL FUMARATE DIHYDRATE
     Indication: PRODUCT USED FOR UNKNOWN INDICATION
     Route: 065
  25. SOLU?MEDROL [Concomitant]
     Active Substance: METHYLPREDNISOLONE SODIUM SUCCINATE
     Indication: PREMEDICATION
     Route: 042
     Dates: start: 20131125
  26. PREDNISONE. [Concomitant]
     Active Substance: PREDNISONE
  27. XARELTO [Concomitant]
     Active Substance: RIVAROXABAN
     Indication: PRODUCT USED FOR UNKNOWN INDICATION

REACTIONS (16)
  - Blood pressure increased [Unknown]
  - Atrial fibrillation [Unknown]
  - Infusion related reaction [Recovered/Resolved]
  - Smoke sensitivity [Unknown]
  - Dyspnoea [Recovered/Resolved]
  - Tooth abscess [Unknown]
  - Hypersensitivity [Recovering/Resolving]
  - Paraesthesia [Recovered/Resolved]
  - Drug ineffective [Unknown]
  - Musculoskeletal stiffness [Unknown]
  - Weight decreased [Recovering/Resolving]
  - Heart rate increased [Unknown]
  - Diverticulitis [Unknown]
  - Emphysema [Recovered/Resolved]
  - Cardiac failure congestive [Unknown]
  - Fungal infection [Not Recovered/Not Resolved]

NARRATIVE: CASE EVENT DATE: 20131126
